FAERS Safety Report 4367490-4 (Version None)
Quarter: 2004Q2

REPORT INFORMATION
  Report Type: 
  Country: None (occurrence: None)
  Receive Date: 20040601
  Receipt Date: 20040506
  Transmission Date: 20050107
  Serious: Yes (Life-Threatening)
  Sender: FDA-Public Use
  Company Number: 200411600JP

PATIENT
  Age: 90 Year
  Sex: Female

DRUGS (2)
  1. KETEK [Suspect]
     Indication: SKIN ULCER
     Route: 048
     Dates: start: 20040315, end: 20040320
  2. LASIX [Concomitant]
     Indication: OEDEMA PERIPHERAL
     Route: 048
     Dates: start: 19990401

REACTIONS (6)
  - GENERALISED ERYTHEMA [None]
  - GENERALISED OEDEMA [None]
  - PYREXIA [None]
  - RESPIRATORY RATE INCREASED [None]
  - SKIN LACERATION [None]
  - TOXIC EPIDERMAL NECROLYSIS [None]
